FAERS Safety Report 13738590 (Version 1)
Quarter: 2017Q3

REPORT INFORMATION
  Report Type: Report from Study
  Country: US (occurrence: US)
  Receive Date: 20170710
  Receipt Date: 20170710
  Transmission Date: 20171127
  Serious: No
  Sender: FDA-Public Use
  Company Number: US-SAOL THERAPEUTICS-2017SAO00196

PATIENT
  Age: 54 Year
  Sex: Male

DRUGS (6)
  1. COMPOUNDED BACLOFEN [Suspect]
     Active Substance: BACLOFEN
     Dosage: 183.3 ?G, \DAY
     Route: 037
     Dates: start: 20160211
  2. MORPHINE [Suspect]
     Active Substance: MORPHINE
     Dosage: 3.997 MG, \DAY
     Route: 037
     Dates: start: 20160211
  3. COMPOUNDED BACLOFEN [Suspect]
     Active Substance: BACLOFEN
     Dosage: 99.93 ?G, \DAY
     Route: 037
     Dates: start: 20160211
  4. BUPIVACAINE. [Suspect]
     Active Substance: BUPIVACAINE
     Dosage: 10.998 MG, \DAY
     Route: 037
     Dates: start: 20160211
  5. BUPIVACAINE. [Suspect]
     Active Substance: BUPIVACAINE
     Dosage: 5.996 MG, \DAY
     Route: 037
     Dates: start: 20160211
  6. MORPHINE [Suspect]
     Active Substance: MORPHINE
     Dosage: 7.332 MG, \DAY
     Route: 037
     Dates: start: 20160211

REACTIONS (1)
  - Medical device site pain [Recovered/Resolved]

NARRATIVE: CASE EVENT DATE: 20160427
